FAERS Safety Report 23651479 (Version 1)
Quarter: 2024Q1

REPORT INFORMATION
  Report Type: Spontaneous
  Country: US (occurrence: US)
  Receive Date: 20240320
  Receipt Date: 20240320
  Transmission Date: 20240410
  Serious: Yes (Other)
  Sender: FDA-Public Use
  Company Number: US-002147023-NVSC2024US057366

PATIENT
  Sex: Male

DRUGS (1)
  1. PLUVICTO [Suspect]
     Active Substance: LUTETIUM LU-177 VIPIVOTIDE TETRAXETAN
     Indication: Prostate cancer stage IV
     Dosage: UNK
     Route: 065

REACTIONS (3)
  - Prostate cancer stage IV [Unknown]
  - Malignant neoplasm progression [Unknown]
  - Metastases to lung [Unknown]
